FAERS Safety Report 6046210-1 (Version None)
Quarter: 2009Q1

REPORT INFORMATION
  Report Type: 
  Country: None (occurrence: None)
  Receive Date: 20090121
  Receipt Date: 20090121
  Transmission Date: 20090719
  Serious: No
  Sender: FDA-Public Use
  Company Number: None

PATIENT
  Age: 60 Year
  Sex: Female
  Weight: 74.8435 kg

DRUGS (1)
  1. ZOLOFT [Suspect]

REACTIONS (3)
  - ABDOMINAL PAIN UPPER [None]
  - COUGH [None]
  - DRUG SCREEN FALSE POSITIVE [None]
